FAERS Safety Report 7278989-5 (Version None)
Quarter: 2011Q1

REPORT INFORMATION
  Report Type: 
  Country: None (occurrence: None)
  Receive Date: 20110207
  Receipt Date: 20110126
  Transmission Date: 20110831
  Serious: Yes (Death, Other)
  Sender: FDA-Public Use
  Company Number: JP-TYCO HEALTHCARE/MALLINCKRODT-T201100137

PATIENT
  Sex: Male

DRUGS (3)
  1. METHADONE HYDROCHLORIDE [Suspect]
     Indication: CANCER PAIN
     Dosage: 30 MG, QD
     Route: 048
     Dates: start: 20110121, end: 20110123
  2. METHADONE HYDROCHLORIDE [Suspect]
     Dosage: 10 MG, QD
     Route: 048
     Dates: start: 20110125, end: 20110125
  3. METHADONE HYDROCHLORIDE [Suspect]
     Dosage: 20 MG, QD
     Route: 048
     Dates: start: 20110124, end: 20110124

REACTIONS (3)
  - FEELING ABNORMAL [None]
  - RENAL FAILURE [None]
  - OVERDOSE [None]
